FAERS Safety Report 21768081 (Version 1)
Quarter: 2022Q4

REPORT INFORMATION
  Report Type: Spontaneous
  Country: JP (occurrence: JP)
  Receive Date: 20221222
  Receipt Date: 20221222
  Transmission Date: 20230112
  Serious: Yes (Life-Threatening, Other)
  Sender: FDA-Public Use
  Company Number: JP-ferring-EVA202201487FERRINGPH

PATIENT

DRUGS (1)
  1. DINOPROSTONE [Suspect]
     Active Substance: DINOPROSTONE
     Indication: Induction of cervix ripening
     Route: 064

REACTIONS (4)
  - Foetal heart rate deceleration abnormality [Unknown]
  - Foetal heart rate deceleration abnormality [Unknown]
  - Foetal acidosis [Unknown]
  - Moaning [Unknown]
